FAERS Safety Report 16585975 (Version 17)
Quarter: 2021Q4

REPORT INFORMATION
  Report Type: Report from Study
  Country: JP (occurrence: JP)
  Receive Date: 20190717
  Receipt Date: 20211122
  Transmission Date: 20220304
  Serious: Yes (Hospitalization, Other)
  Sender: FDA-Public Use
  Company Number: JP-AMGEN-JPNNI2019106946

PATIENT
  Age: 13 Year
  Sex: Male
  Weight: 45 kg

DRUGS (16)
  1. BLINATUMOMAB [Suspect]
     Active Substance: BLINATUMOMAB
     Indication: B precursor type acute leukaemia
     Dosage: 5 MICROGRAM/SQ. METER, QD
     Route: 041
     Dates: start: 20190701, end: 20190708
  2. BLINATUMOMAB [Suspect]
     Active Substance: BLINATUMOMAB
     Dosage: 5 MICROGRAM/SQ. METER, QD
     Route: 041
     Dates: start: 20190722, end: 20190728
  3. BLINATUMOMAB [Suspect]
     Active Substance: BLINATUMOMAB
     Dosage: 15 MICROGRAM/SQ. METER, QD
     Route: 041
     Dates: start: 20190729, end: 20190819
  4. BLINATUMOMAB [Suspect]
     Active Substance: BLINATUMOMAB
     Dosage: 15 MICROGRAM/SQ. METER, QD
     Route: 041
     Dates: start: 20190917, end: 20191015
  5. DECADRON [Suspect]
     Active Substance: DEXAMETHASONE
     Indication: Pyrexia
     Dosage: UNK
     Route: 065
     Dates: end: 20190704
  6. DECADRON [Suspect]
     Active Substance: DEXAMETHASONE
     Indication: Cytokine release syndrome
  7. DECADRON [Suspect]
     Active Substance: DEXAMETHASONE
     Indication: Prophylaxis
  8. DEXAMETHASONE [Suspect]
     Active Substance: DEXAMETHASONE
     Indication: Prophylaxis
     Dosage: UNK
     Route: 065
     Dates: start: 20190722, end: 20190723
  9. DEXAMETHASONE [Suspect]
     Active Substance: DEXAMETHASONE
     Dosage: UNK
     Route: 065
     Dates: start: 20190729, end: 20190729
  10. DEXAMETHASONE [Suspect]
     Active Substance: DEXAMETHASONE
     Dosage: UNK
     Route: 065
     Dates: start: 20190917, end: 20190918
  11. MICAFUNGIN SODIUM [Concomitant]
     Active Substance: MICAFUNGIN SODIUM
     Dosage: UNK
  12. STRONGER NEO-MINOPHAGEN C [CYSTEINE HYDROCHLORIDE;GLYCINE;GLYCYRRHIZIC [Concomitant]
     Indication: Alanine aminotransferase increased
     Dosage: UNK
     Dates: end: 20191023
  13. STRONGER NEO-MINOPHAGEN C [CYSTEINE HYDROCHLORIDE;GLYCINE;GLYCYRRHIZIC [Concomitant]
     Indication: Prophylaxis
  14. METHOTREXATE [Concomitant]
     Active Substance: METHOTREXATE
     Indication: Prophylaxis
     Dosage: UNK
     Dates: start: 20190829, end: 20190829
  15. CYTARABINE [Concomitant]
     Active Substance: CYTARABINE
     Indication: Prophylaxis
     Dosage: UNK
     Dates: start: 20190829, end: 20190829
  16. SOLU-CORTEF [Concomitant]
     Active Substance: HYDROCORTISONE SODIUM SUCCINATE
     Indication: Prophylaxis
     Dosage: UNK
     Dates: start: 20190829, end: 20190829

REACTIONS (9)
  - Hypoxia [Recovered/Resolved]
  - Hypogammaglobulinaemia [Recovering/Resolving]
  - Cytokine release syndrome [Recovering/Resolving]
  - Vascular device infection [Recovered/Resolved]
  - Candida infection [Recovered/Resolved]
  - Alanine aminotransferase increased [Recovering/Resolving]
  - Pyrexia [Recovered/Resolved]
  - Alanine aminotransferase increased [Recovering/Resolving]
  - Weight increased [Recovering/Resolving]

NARRATIVE: CASE EVENT DATE: 20190701
